FAERS Safety Report 13073602 (Version 1)
Quarter: 2016Q4

REPORT INFORMATION
  Report Type: Spontaneous
  Country: KW (occurrence: KW)
  Receive Date: 20161229
  Receipt Date: 20161229
  Transmission Date: 20170207
  Serious: Yes (Other)
  Sender: FDA-Public Use
  Company Number: KW-REGENERON PHARMACEUTICALS, INC.-2016-25561

PATIENT

DRUGS (1)
  1. EYLEA [Suspect]
     Active Substance: AFLIBERCEPT
     Indication: NEOVASCULAR AGE-RELATED MACULAR DEGENERATION
     Dosage: NO 3 INITIAL DOSES

REACTIONS (2)
  - Dry age-related macular degeneration [Unknown]
  - Product use issue [Unknown]
